FAERS Safety Report 8421470 (Version 2)
Quarter: 2013Q3

REPORT INFORMATION
  Report Type: Report from Study
  Country: MX (occurrence: MX)
  Receive Date: 20120222
  Receipt Date: 20130828
  Transmission Date: 20140515
  Serious: Yes (Other)
  Sender: FDA-Public Use
  Company Number: PHHY2012MX013060

PATIENT
  Sex: Male

DRUGS (10)
  1. RITALIN [Suspect]
     Indication: ATTENTION DEFICIT/HYPERACTIVITY DISORDER
     Dosage: 10 MG, QD
  2. RITALIN [Suspect]
     Dosage: 5 MG, QD
  3. RITALIN [Suspect]
     Dosage: 10 MG, QD
  4. RITALIN [Suspect]
     Dosage: 5 MG, QD
  5. RITALIN LA [Suspect]
     Indication: ATTENTION DEFICIT/HYPERACTIVITY DISORDER
     Dosage: 20 MG, QD
     Route: 048
     Dates: start: 200902, end: 201111
  6. METICORTELONE [Concomitant]
     Indication: MYASTHENIA GRAVIS
     Dosage: 7 ML, QD
  7. PREDNISONE [Concomitant]
     Indication: MYASTHENIA GRAVIS
     Dosage: UNK UKN, UNK
  8. MESTINON [Concomitant]
     Dosage: 220 MG, QD
  9. STRATTERA [Concomitant]
     Indication: ATTENTION DEFICIT/HYPERACTIVITY DISORDER
     Dosage: 10 MG, UNK
  10. NEOSTIGMINE [Concomitant]
     Indication: MYASTHENIA GRAVIS
     Dosage: UNK UKN, UNK

REACTIONS (5)
  - Myasthenia gravis [Unknown]
  - Eyelid ptosis [Recovered/Resolved]
  - Asthenia [Unknown]
  - Somnolence [Recovered/Resolved]
  - Drug ineffective [Unknown]
